FAERS Safety Report 8304052-8 (Version None)
Quarter: 2012Q2

REPORT INFORMATION
  Report Type: 
  Country: None (occurrence: None)
  Receive Date: 20120423
  Receipt Date: 20120418
  Transmission Date: 20120825
  Serious: No
  Sender: FDA-Public Use
  Company Number: US-BAYER-2012-038684

PATIENT

DRUGS (1)
  1. ULTRAVIST 150 [Suspect]
     Dosage: 120 MG
     Dates: start: 20120401, end: 20120401

REACTIONS (1)
  - RASH [None]
